FAERS Safety Report 6555335-3 (Version None)
Quarter: 2010Q1

REPORT INFORMATION
  Report Type: 
  Country: None (occurrence: None)
  Receive Date: 20100128
  Receipt Date: 20090602
  Transmission Date: 20100710
  Serious: No
  Sender: FDA-Public Use
  Company Number: A0789149A

PATIENT
  Age: 64 Year
  Sex: Female

DRUGS (3)
  1. WELLBUTRIN [Suspect]
     Indication: DRUG USE FOR UNKNOWN INDICATION
     Route: 065
  2. EXTRA STRENGTH TYLENOL [Suspect]
     Indication: PAIN
     Dosage: 500MG FIVE TIMES PER DAY
     Route: 048
     Dates: start: 20070901, end: 20070901
  3. UNKNOWN [Concomitant]

REACTIONS (2)
  - HYPERSENSITIVITY [None]
  - RASH [None]
